FAERS Safety Report 8153396-1 (Version None)
Quarter: 2012Q1

REPORT INFORMATION
  Report Type: 
  Country: None (occurrence: None)
  Receive Date: 20120215
  Receipt Date: 20120206
  Transmission Date: 20120608
  Serious: Yes (Other)
  Sender: FDA-Public Use
  Company Number: TPA2012A00667

PATIENT
  Age: 70 Year
  Sex: Male

DRUGS (10)
  1. ACTOS [Suspect]
     Dosage: 1 IN 1 D
     Dates: start: 20110331, end: 20110711
  2. FLOMAX [Concomitant]
  3. ENALAPRIL MALEATE [Concomitant]
  4. LOVASTATIN [Concomitant]
  5. HYDROCHLOROTHIAZIDE [Concomitant]
  6. LORTAB [Concomitant]
  7. METFORMIN HCL [Concomitant]
  8. GLYBURIDE [Concomitant]
  9. ACTOPLUS MET [Suspect]
     Indication: TYPE 2 DIABETES MELLITUS
     Dosage: 30/1000 MG
     Dates: start: 20110711, end: 20111101
  10. IBUPROFEN [Concomitant]

REACTIONS (1)
  - BLADDER CANCER [None]
